FAERS Safety Report 24607054 (Version 1)
Quarter: 2024Q4

REPORT INFORMATION
  Report Type: Spontaneous
  Country: US (occurrence: None)
  Receive Date: 20241108
  Receipt Date: 20241108
  Transmission Date: 20250114
  Serious: Yes (Life-Threatening, Hospitalization)
  Sender: Public
  Company Number: None

PATIENT
  Age: 69 Year
  Sex: Male
  Weight: 113 kg

DRUGS (1)
  1. RIVAROXABAN [Suspect]
     Active Substance: RIVAROXABAN
     Indication: Atrial fibrillation
     Dosage: FREQUENCY : DAILY;?
     Route: 048

REACTIONS (8)
  - Confusional state [None]
  - Headache [None]
  - Hypertension [None]
  - Epistaxis [None]
  - Vision blurred [None]
  - Cerebral haemorrhage [None]
  - Cerebral haematoma [None]
  - Cerebral mass effect [None]

NARRATIVE: CASE EVENT DATE: 20240826
